FAERS Safety Report 18304039 (Version 2)
Quarter: 2020Q4

REPORT INFORMATION
  Report Type: Report from Study
  Country: US (occurrence: US)
  Receive Date: 20200923
  Receipt Date: 20201126
  Transmission Date: 20210113
  Serious: No
  Sender: FDA-Public Use
  Company Number: NVSC2020US259738

PATIENT
  Sex: Female

DRUGS (2)
  1. COSENTYX [Suspect]
     Active Substance: SECUKINUMAB
     Indication: PSORIATIC ARTHROPATHY
     Dosage: 150 MG, QW (FOR 5 WEEKS, THEN ONCEEVERY 4 WEEKS)
     Route: 058
     Dates: start: 20200918
  2. COSENTYX [Suspect]
     Active Substance: SECUKINUMAB
     Dosage: 300 MG, Q4W  (ONCE EVERY 4 WEEKS)
     Route: 058

REACTIONS (2)
  - Musculoskeletal stiffness [Unknown]
  - Fatigue [Recovered/Resolved]
